FAERS Safety Report 19430183 (Version 1)
Quarter: 2021Q2

REPORT INFORMATION
  Report Type: Spontaneous
  Country: US (occurrence: US)
  Receive Date: 20210617
  Receipt Date: 20210617
  Transmission Date: 20210717
  Serious: Yes (Life-Threatening, Hospitalization)
  Sender: FDA-Public Use
  Company Number: US-MYLANLABS-2021M1035037

PATIENT
  Age: 7 Month
  Sex: Male
  Weight: 7.9 kg

DRUGS (5)
  1. HEPARIN [Suspect]
     Active Substance: HEPARIN SODIUM
     Indication: VENOUS THROMBOSIS
  2. BIVALIRUDIN. [Suspect]
     Active Substance: BIVALIRUDIN
     Indication: PERIPHERAL ARTERY THROMBOSIS
     Dosage: 2 MILLIGRAM/KILOGRAM, QH,MAXIMUM DOSE
     Route: 065
  3. BIVALIRUDIN. [Suspect]
     Active Substance: BIVALIRUDIN
     Indication: VENOUS THROMBOSIS
  4. HEPARIN [Suspect]
     Active Substance: HEPARIN SODIUM
     Indication: PERIPHERAL ARTERY THROMBOSIS
     Dosage: 20 INTERNATIONAL UNIT/KILOGRAM, QH, INFUSION
  5. BIVALIRUDIN. [Suspect]
     Active Substance: BIVALIRUDIN
     Indication: THROMBOSIS

REACTIONS (1)
  - Drug ineffective [Unknown]
